FAERS Safety Report 21097760 (Version 2)
Quarter: 2022Q3

REPORT INFORMATION
  Report Type: Other
  Country: ZA (occurrence: None)
  Receive Date: 20220719
  Receipt Date: 20220821
  Transmission Date: 20221026
  Serious: Yes (Other)
  Sender: FDA-Public Use
  Company Number: ZA-ROCHE-3135745

PATIENT
  Sex: Female

DRUGS (1)
  1. OCREVUS [Suspect]
     Active Substance: OCRELIZUMAB
     Indication: Relapsing multiple sclerosis
     Dosage: THEN 600MG EVERY 6 MONTHS
     Route: 041
     Dates: start: 20220118

REACTIONS (4)
  - Gait disturbance [Unknown]
  - Multiple sclerosis [Unknown]
  - Demyelination [Unknown]
  - Atrophy [Unknown]
